FAERS Safety Report 9004822 (Version 2)
Quarter: 2013Q3

REPORT INFORMATION
  Report Type: Spontaneous
  Country: US (occurrence: None)
  Receive Date: 20121226
  Receipt Date: 20130815
  Transmission Date: 20140515
  Serious: Yes (Hospitalization, Other)
  Sender: FDA-Public Use
  Company Number: ADR-2012-02266

PATIENT
  Sex: Female

DRUGS (3)
  1. BACLOFEN INTRATHECAL [Suspect]
     Indication: PAIN
  2. DILAUDID [Concomitant]
  3. BUPIVACAINE [Concomitant]

REACTIONS (7)
  - Oedema peripheral [None]
  - Device battery issue [None]
  - Local swelling [None]
  - Neuralgia [None]
  - Disease progression [None]
  - Oedema peripheral [None]
  - Neuralgia [None]
